FAERS Safety Report 5027808-6 (Version None)
Quarter: 2006Q2

REPORT INFORMATION
  Report Type: 
  Country: None (occurrence: None)
  Receive Date: 20060501
  Receipt Date: 20060201
  Transmission Date: 20061013
  Serious: Yes (Other)
  Sender: FDA-Public Use
  Company Number: 200515037US

PATIENT
  Age: 74 Year
  Sex: Female
  Weight: 71.8 kg

DRUGS (5)
  1. KETEK [Suspect]
     Indication: BRONCHITIS ACUTE
     Dosage: 400 (2 TABLETS) MG QD PO
     Route: 048
  2. GUAIFENESIN [Concomitant]
  3. FOSAMAX [Concomitant]
  4. LOPID [Concomitant]
  5. CELEBREX [Concomitant]

REACTIONS (3)
  - ALANINE AMINOTRANSFERASE INCREASED [None]
  - ASPARTATE AMINOTRANSFERASE INCREASED [None]
  - HEPATITIS [None]
